FAERS Safety Report 5067926-X (Version None)
Quarter: 2006Q3

REPORT INFORMATION
  Report Type: 
  Country: None (occurrence: None)
  Receive Date: 20060802
  Receipt Date: 20060722
  Transmission Date: 20061208
  Serious: Yes (Hospitalization)
  Sender: FDA-Public Use
  Company Number: US-AMGEN-US187407

PATIENT
  Sex: Female

DRUGS (2)
  1. ENBREL [Suspect]
     Indication: RHEUMATOID ARTHRITIS
     Route: 058
     Dates: start: 20050101
  2. METHOTREXATE [Concomitant]
     Route: 048
     Dates: start: 20000101

REACTIONS (5)
  - ASTHMA [None]
  - CHEST PAIN [None]
  - CONDITION AGGRAVATED [None]
  - DISCOMFORT [None]
  - RHEUMATOID ARTHRITIS [None]
